FAERS Safety Report 5527830-7 (Version None)
Quarter: 2007Q4

REPORT INFORMATION
  Report Type: 
  Country: None (occurrence: None)
  Receive Date: 20071128
  Receipt Date: 20071123
  Transmission Date: 20080405
  Serious: Yes (Hospitalization)
  Sender: FDA-Public Use
  Company Number: B0497198A

PATIENT
  Age: 85 Year
  Sex: Female

DRUGS (4)
  1. FORTUM [Suspect]
     Route: 042
     Dates: start: 20070817, end: 20070822
  2. VANCOMYCIN [Suspect]
     Indication: ERYSIPELAS
     Dosage: 500MG TWICE PER DAY
     Route: 042
     Dates: start: 20070817, end: 20070822
  3. CIPROFLOXACIN HCL [Suspect]
     Indication: URINARY TRACT INFECTION
     Dosage: 400MG TWICE PER DAY
     Route: 042
     Dates: start: 20070817, end: 20070820
  4. CIPROFLOXACIN HCL [Suspect]
     Dosage: 400MG TWICE PER DAY
     Route: 048
     Dates: start: 20070820, end: 20070822

REACTIONS (3)
  - PRURITUS [None]
  - RASH MACULO-PAPULAR [None]
  - RASH SCARLATINIFORM [None]
